FAERS Safety Report 21124847 (Version 1)
Quarter: 2022Q3

REPORT INFORMATION
  Report Type: Spontaneous
  Country: LB (occurrence: LB)
  Receive Date: 20220725
  Receipt Date: 20220725
  Transmission Date: 20221026
  Serious: Yes (Hospitalization, Other)
  Sender: FDA-Public Use
  Company Number: LB-Accord-245492

PATIENT
  Age: 56 Year
  Sex: Male
  Weight: 100 kg

DRUGS (1)
  1. METHOTREXATE [Suspect]
     Active Substance: METHOTREXATE
     Indication: Psoriasis
     Dosage: 2.5 MG TWICE PER WEEK
     Route: 048

REACTIONS (7)
  - Hepatic cirrhosis [Recovered/Resolved]
  - Hiatus hernia [Recovered/Resolved]
  - Varices oesophageal [Recovered/Resolved]
  - Portal shunt [Recovered/Resolved]
  - Portal hypertension [Recovered/Resolved]
  - Hepatic encephalopathy [Recovered/Resolved]
  - Portal hypertensive gastropathy [Recovered/Resolved]
